FAERS Safety Report 11365454 (Version 2)
Quarter: 2015Q3

REPORT INFORMATION
  Report Type: Report from Study
  Country: TH (occurrence: TH)
  Receive Date: 20150811
  Receipt Date: 20150821
  Transmission Date: 20151125
  Serious: Yes (Death, Other)
  Sender: FDA-Public Use
  Company Number: PHHY2015TH094312

PATIENT
  Sex: Female

DRUGS (1)
  1. GLIVEC [Suspect]
     Active Substance: IMATINIB MESYLATE
     Indication: GASTROINTESTINAL STROMAL TUMOUR
     Dosage: 400 MG, UNK
     Route: 065

REACTIONS (8)
  - Infection [Fatal]
  - Malignant neoplasm progression [Fatal]
  - Inferior vena caval occlusion [Unknown]
  - Intra-abdominal pressure increased [Unknown]
  - Tumour embolism [Fatal]
  - Gastrointestinal stromal tumour [Fatal]
  - Anaemia [Unknown]
  - Metastasis [Fatal]
